FAERS Safety Report 20441191 (Version 2)
Quarter: 2022Q1

REPORT INFORMATION
  Report Type: Report from Study
  Country: DZ (occurrence: DZ)
  Receive Date: 20220208
  Receipt Date: 20220217
  Transmission Date: 20220424
  Serious: Yes (Death)
  Sender: FDA-Public Use
  Company Number: DZ-BAYER-2022A017516

PATIENT
  Age: 48 Year
  Sex: Female

DRUGS (1)
  1. VENTAVIS [Suspect]
     Active Substance: ILOPROST
     Indication: Pulmonary arterial hypertension
     Dosage: 2 ML, 3 INHALATIONS PER DAY
     Route: 055
     Dates: start: 20180221, end: 20211224

REACTIONS (2)
  - Cardiac arrest [Fatal]
  - Inappropriate schedule of product administration [Unknown]

NARRATIVE: CASE EVENT DATE: 20220202
